FAERS Safety Report 8538413-9 (Version None)
Quarter: 2012Q3

REPORT INFORMATION
  Report Type: 
  Country: None (occurrence: None)
  Receive Date: 20120726
  Receipt Date: 20120724
  Transmission Date: 20120928
  Serious: No
  Sender: FDA-Public Use
  Company Number: US-PFIZER INC-2012179504

PATIENT
  Sex: Female
  Weight: 56.689 kg

DRUGS (4)
  1. CHANTIX [Suspect]
     Indication: SMOKING CESSATION THERAPY
     Dosage: 0.5 MG, 1X/DAY
     Route: 048
     Dates: start: 20120713
  2. CHANTIX [Suspect]
     Dosage: 0.5 MG, 2X/DAY
     Route: 048
     Dates: end: 20120718
  3. CHANTIX [Suspect]
     Dosage: 0.5 MG, UNK
     Route: 048
  4. TYLENOL [Concomitant]
     Dosage: UNK

REACTIONS (2)
  - HEADACHE [None]
  - ABNORMAL DREAMS [None]
